FAERS Safety Report 24272799 (Version 1)
Quarter: 2024Q3

REPORT INFORMATION
  Report Type: Spontaneous
  Country: CH (occurrence: CH)
  Receive Date: 20240902
  Receipt Date: 20240902
  Transmission Date: 20241017
  Serious: No
  Sender: UCB
  Company Number: CH-UCBSA-2024042623

PATIENT
  Age: 60 Year
  Sex: Female

DRUGS (1)
  1. NEUPRO [Suspect]
     Active Substance: ROTIGOTINE
     Indication: Product used for unknown indication
     Dosage: TWICE A WEEK FOR 24 HOURS
     Route: 062
     Dates: start: 2023

REACTIONS (2)
  - Product adhesion issue [Unknown]
  - Product use issue [Unknown]

NARRATIVE: CASE EVENT DATE: 20230101
